FAERS Safety Report 10239283 (Version 1)
Quarter: 2014Q1

REPORT INFORMATION
  Report Type: Spontaneous
  Country: US (occurrence: None)
  Receive Date: 20140306
  Receipt Date: 20140306
  Transmission Date: 20141002
  Serious: Yes (Hospitalization)
  Sender: FDA-Public Use
  Company Number: 163-21880-13042205

PATIENT
  Age: 72 Year
  Sex: Female
  Weight: 85.9 kg

DRUGS (11)
  1. REVLIMID (LENALIDOMIDE) (25 MILLIGRAM, CAPSULES) [Suspect]
     Indication: PLASMA CELL MYELOMA
     Dosage: 25 MG, 1 IN 1 D, PO
     Route: 048
     Dates: start: 20130218
  2. VELCADE (BORTEZOMIB) (UNKNOWN) [Concomitant]
  3. GLYBURIDE (GLIBENCLAMIDE) (TABLETS) [Concomitant]
  4. FENTANYL (FENTANYL) (POULTICE OR PATCH) [Concomitant]
  5. NORCO (VICODIN) (UNKNOWN) [Concomitant]
  6. TRIAMTERENE HYDROCHLOROTHIAZIDE (DYAZIDE) (TABLETS) [Concomitant]
  7. DEXAMETHASONE (DEXAMETHASONE) (TABLETS) [Concomitant]
  8. TYLENOL (PARACETAMOL) (UNKNOWN) [Concomitant]
  9. K-DUR (POTASSIUM CHLORIDE) (UNKNOWN) [Concomitant]
  10. ZOFRAN (ONDANSETRON HYDROCHLORIDE) (UNKNOWN) [Concomitant]
  11. MAGNESIUM OXIDE (MAGNESIUM OXIDE) (UNKNOWN) [Concomitant]

REACTIONS (5)
  - Sepsis [None]
  - Neuropathy peripheral [None]
  - Fatigue [None]
  - Malaise [None]
  - Asthenia [None]
